FAERS Safety Report 8232668-6 (Version None)
Quarter: 2012Q1

REPORT INFORMATION
  Report Type: 
  Country: None (occurrence: None)
  Receive Date: 20120323
  Receipt Date: 20120322
  Transmission Date: 20120608
  Serious: Yes (Hospitalization)
  Sender: FDA-Public Use
  Company Number: ES-PFIZER INC-2012074492

PATIENT
  Age: 47 Year
  Sex: Female

DRUGS (6)
  1. ALPRAZOLAM [Suspect]
     Indication: SUICIDE ATTEMPT
     Dosage: 20 MG, 1X/DAY
     Route: 048
     Dates: start: 20110907, end: 20110907
  2. ACETAMINOPHEN [Suspect]
     Indication: PAIN
     Dosage: 6.5 G, 1X/DAY
     Route: 048
     Dates: start: 20110907, end: 20110907
  3. VENLAFAXINE HCL [Suspect]
     Dosage: UNK
  4. QUETIAPINE [Suspect]
     Indication: DEPRESSION
     Dosage: 100 MG, 1X/DAY
     Route: 048
     Dates: start: 20110401, end: 20110906
  5. TOPIRAMATE [Suspect]
     Indication: DEPRESSION
     Dosage: 100 MG, 1X/DAY
     Route: 048
     Dates: start: 20110401, end: 20110907
  6. SEROQUEL [Suspect]
     Indication: SUICIDE ATTEMPT
     Dosage: 1 G, 1X/DAY
     Route: 048
     Dates: start: 20110907, end: 20110907

REACTIONS (2)
  - COMA [None]
  - INTENTIONAL OVERDOSE [None]
